FAERS Safety Report 6102537-6 (Version None)
Quarter: 2009Q1

REPORT INFORMATION
  Report Type: 
  Country: None (occurrence: None)
  Receive Date: 20090304
  Receipt Date: 20080806
  Transmission Date: 20090719
  Serious: No
  Sender: FDA-Public Use
  Company Number: A0741371A

PATIENT
  Age: 68 Year
  Sex: Male

DRUGS (11)
  1. REQUIP [Suspect]
     Indication: PARKINSON'S DISEASE
     Dosage: 3MG THREE TIMES PER DAY
     Route: 048
  2. REQUIP XL [Suspect]
     Indication: PARKINSON'S DISEASE
     Dosage: 3MG PER DAY
     Route: 048
     Dates: start: 20080729, end: 20080729
  3. LISINOPRIL [Concomitant]
  4. ATENOLOL [Concomitant]
  5. GLEEVEC [Concomitant]
  6. SULAR [Concomitant]
  7. STALEVO 100 [Concomitant]
  8. M.V.I. [Concomitant]
  9. VITAMIN B-12 [Concomitant]
  10. CALCIUM + D. VITAMIN [Concomitant]
  11. FISH OIL [Concomitant]

REACTIONS (8)
  - BLOOD PRESSURE DECREASED [None]
  - COLD SWEAT [None]
  - DIZZINESS [None]
  - FEELING ABNORMAL [None]
  - NAUSEA [None]
  - PRODUCT QUALITY ISSUE [None]
  - SOMNOLENCE [None]
  - SPEECH DISORDER [None]
